FAERS Safety Report 10924232 (Version 1)
Quarter: 2015Q1

REPORT INFORMATION
  Report Type: Spontaneous
  Country: US (occurrence: None)
  Receive Date: 20150316
  Receipt Date: 20150316
  Transmission Date: 20150721
  Serious: Yes (Other)
  Sender: FDA-Public Use
  Company Number: None

PATIENT
  Age: 49 Year
  Sex: Male
  Weight: 105.5 kg

DRUGS (1)
  1. BUPROPION [Suspect]
     Active Substance: BUPROPION
     Indication: NICOTINE DEPENDENCE
     Dates: start: 20120214, end: 20140924

REACTIONS (1)
  - Aphthous stomatitis [None]

NARRATIVE: CASE EVENT DATE: 20141201
